FAERS Safety Report 7895899-0 (Version None)
Quarter: 2011Q4

REPORT INFORMATION
  Report Type: 
  Country: None (occurrence: None)
  Receive Date: 20111028
  Receipt Date: 20110527
  Transmission Date: 20120403
  Serious: Yes (Other)
  Sender: FDA-Public Use
  Company Number: DSA_46841_2011

PATIENT
  Sex: Male

DRUGS (3)
  1. WELLBUTRIN [Suspect]
     Indication: DEPRESSION
     Dosage: (1 DF BID ORAL)
     Route: 048
  2. LYRICA [Suspect]
     Indication: NERVE INJURY
     Dosage: (200 MG QD ORAL)
     Route: 048
  3. LORAZEPAM [Concomitant]

REACTIONS (3)
  - DIZZINESS [None]
  - SUICIDAL IDEATION [None]
  - SLEEP DISORDER [None]
